FAERS Safety Report 4488897-0 (Version None)
Quarter: 2004Q3

REPORT INFORMATION
  Report Type: 
  Country: None (occurrence: None)
  Receive Date: 20040921
  Receipt Date: 20030721
  Transmission Date: 20050211
  Serious: Yes (Hospitalization)
  Sender: FDA-Public Use
  Company Number: 163-20785-03070564

PATIENT
  Age: 51 Year
  Sex: Male

DRUGS (2)
  1. THALOMID [Suspect]
     Indication: SMALL CELL LUNG CANCER STAGE UNSPECIFIED
     Dosage: 50 MG, QD, ORAL
     Route: 048
     Dates: start: 20030407, end: 20030601
  2. THALOMID [Suspect]
     Indication: SMALL CELL LUNG CANCER STAGE UNSPECIFIED
     Dosage: 50 MG, QD, ORAL
     Route: 048
     Dates: start: 20030401

REACTIONS (2)
  - DIZZINESS [None]
  - PANCREATITIS [None]
